FAERS Safety Report 13450107 (Version 1)
Quarter: 2017Q2

REPORT INFORMATION
  Report Type: Spontaneous
  Country: US (occurrence: US)
  Receive Date: 20170417
  Receipt Date: 20170417
  Transmission Date: 20170830
  Serious: No
  Sender: FDA-Public Use
  Company Number: US-BION-20160674

PATIENT
  Age: 59 Year
  Sex: Male
  Weight: 70.31 kg

DRUGS (5)
  1. MULTIVITAMIN BRAND [Concomitant]
  2. LISINOPRIL. [Concomitant]
     Active Substance: LISINOPRIL
  3. ALEVE [Suspect]
     Active Substance: NAPROXEN SODIUM
     Dosage: 6 DF
     Route: 048
     Dates: end: 20161102
  4. AMLODIPINE [Concomitant]
     Active Substance: AMLODIPINE BESYLATE
  5. VITAMIN B SUPPLEMENT [Concomitant]

REACTIONS (1)
  - Prescribed overdose [Unknown]
